FAERS Safety Report 5092199-1 (Version None)
Quarter: 2006Q3

REPORT INFORMATION
  Report Type: 
  Country: None (occurrence: None)
  Receive Date: 20060825
  Receipt Date: 20060818
  Transmission Date: 20061208
  Serious: Yes (Other)
  Sender: FDA-Public Use
  Company Number: 2006EN000158

PATIENT
  Age: 59 Year
  Sex: Female

DRUGS (1)
  1. ABELCET [Suspect]
     Indication: COCCIDIOIDOMYCOSIS
     Dosage: 5 MG/KG; QD; IV
     Route: 042

REACTIONS (2)
  - CATHETER RELATED COMPLICATION [None]
  - DEEP VEIN THROMBOSIS [None]
